FAERS Safety Report 7027697 (Version 2)
Quarter: 2012Q4

REPORT INFORMATION
  Report Type: 
  Country: GB (occurrence: US)
  Receive Date: 20090619
  Receipt Date: 20121214
  Transmission Date: 20130627
  Serious: Yes (Hospitalization)
  Sender: FDA-Public Use
  Company Number: US-BAYER-200923487NA

PATIENT
  Age: 80 Year
  Sex: Male
  Weight: 64 kg

DRUGS (4)
  1. SORAFENIB (RAF KINASE INHIBITOR) [Suspect]
     Indication: PANCREAS CANCER
     Dosage: 200 mg, QOD
     Route: 048
     Dates: end: 20090522
  2. OXALIPLATIN [Suspect]
     Indication: PANCREAS CANCER
     Dosage: 76 mg, Q2WK
     Route: 041
     Dates: start: 20081009, end: 20090522
  3. CAPECITABINE [Suspect]
     Indication: PANCREAS CANCER
     Dosage: 2025 mg, TID
     Route: 048
     Dates: start: 20081009
  4. AMBIEN [Concomitant]
     Dosage: 5 mg, HS

REACTIONS (3)
  - Lobar pneumonia [None]
  - Febrile neutropenia [None]
  - Hypotension [None]
